FAERS Safety Report 19831154 (Version 1)
Quarter: 2021Q3

REPORT INFORMATION
  Report Type: Spontaneous
  Country: US (occurrence: US)
  Receive Date: 20210915
  Receipt Date: 20210915
  Transmission Date: 20211014
  Serious: No
  Sender: FDA-Public Use
  Company Number: US-AUROBINDO-AUR-APL-2020-056896

PATIENT
  Age: 59 Year
  Sex: Female
  Weight: 58.05 kg

DRUGS (1)
  1. DEXTROAMPHETAMINE SULFATE TABLETS, USP 10 MG [Suspect]
     Active Substance: DEXTROAMPHETAMINE SULFATE
     Indication: ATTENTION DEFICIT HYPERACTIVITY DISORDER
     Dosage: UNK, 3 TIMES A DAY
     Route: 065
     Dates: start: 1989

REACTIONS (1)
  - Urine amphetamine positive [Not Recovered/Not Resolved]
